FAERS Safety Report 6075730-9 (Version None)
Quarter: 2009Q1

REPORT INFORMATION
  Report Type: 
  Country: None (occurrence: None)
  Receive Date: 20090209
  Receipt Date: 20090128
  Transmission Date: 20090719
  Serious: Yes (Hospitalization, Other)
  Sender: FDA-Public Use
  Company Number: 2008SP024319

PATIENT
  Age: 74 Year
  Sex: Female
  Weight: 73 kg

DRUGS (3)
  1. VIRAFERONPEG [Suspect]
     Indication: HEPATITIS C
     Dosage: 108 MCG;QW;
     Dates: start: 20080507, end: 20080514
  2. REBETOL [Suspect]
     Indication: HEPATITIS C
     Dosage: 1000 MG;
     Dates: start: 20080507, end: 20080514
  3. PLAVIX [Concomitant]

REACTIONS (6)
  - FATIGUE [None]
  - HAEMOGLOBIN DECREASED [None]
  - PARALYSIS [None]
  - RHABDOMYOLYSIS [None]
  - SPEECH DISORDER [None]
  - VOMITING [None]
